FAERS Safety Report 10925532 (Version 2)
Quarter: 2015Q2

REPORT INFORMATION
  Report Type: Spontaneous
  Country: FR (occurrence: FR)
  Receive Date: 20150318
  Receipt Date: 20150430
  Transmission Date: 20150821
  Serious: Yes (Hospitalization)
  Sender: FDA-Public Use
  Company Number: FR-PFIZER INC-2015091628

PATIENT
  Age: 72 Year
  Sex: Male
  Weight: 101 kg

DRUGS (2)
  1. ALDACTONE [Suspect]
     Active Substance: SPIRONOLACTONE
     Dosage: 50 MG (ONE DOSAGE FORM ONCE DAILY)
     Route: 048
     Dates: start: 20150222, end: 20150227
  2. INEXIUM /01479302/ [Suspect]
     Active Substance: ESOMEPRAZOLE MAGNESIUM
     Dosage: 40 MG (ONE DOSAGE FORM ONCE DAILY)
     Route: 048
     Dates: start: 20150221, end: 20150225

REACTIONS (1)
  - Pancytopenia [Recovering/Resolving]

NARRATIVE: CASE EVENT DATE: 20150225
